FAERS Safety Report 5014554-8 (Version None)
Quarter: 2006Q2

REPORT INFORMATION
  Report Type: 
  Country: None (occurrence: None)
  Receive Date: 20060531
  Receipt Date: 20060522
  Transmission Date: 20061013
  Serious: Yes (Other)
  Sender: FDA-Public Use
  Company Number: RU-AVENTIS-200612907EU

PATIENT
  Age: 49 Year
  Sex: Male

DRUGS (1)
  1. TRENTAL [Suspect]
     Indication: HEADACHE
     Dosage: DOSE: UNKNOWN DOSE
     Route: 042
     Dates: start: 20060515

REACTIONS (5)
  - ABDOMINAL PAIN UPPER [None]
  - HEADACHE [None]
  - HYPOAESTHESIA [None]
  - LOSS OF CONSCIOUSNESS [None]
  - TACHYCARDIA [None]
